FAERS Safety Report 5903089-3 (Version None)
Quarter: 2008Q3

REPORT INFORMATION
  Report Type: 
  Country: None (occurrence: None)
  Receive Date: 20080930
  Receipt Date: 20080922
  Transmission Date: 20090109
  Serious: Yes (Death, Life-Threatening, Hospitalization)
  Sender: FDA-Public Use
  Company Number: BR-ROCHE-396914

PATIENT
  Sex: Male
  Weight: 72 kg

DRUGS (8)
  1. CAPECITABINE [Suspect]
     Indication: COLORECTAL CANCER
     Dosage: DATE OF LAST DOSE PRIOR TO SAE: 25 FEB 2005
     Route: 048
     Dates: start: 20050214, end: 20050303
  2. BLINDED BEVACIZUMAB [Suspect]
     Indication: COLORECTAL CANCER
     Dosage: FORM: INFUSION
     Route: 042
     Dates: start: 20050214, end: 20050303
  3. OXALIPLATIN [Suspect]
     Indication: COLORECTAL CANCER
     Route: 042
     Dates: start: 20050214, end: 20050303
  4. ATENOLOL [Concomitant]
  5. CLORTALIDONA [Concomitant]
  6. ONDANSETRON [Concomitant]
     Dates: start: 20050214
  7. ESPIRONOLACTONA [Concomitant]
     Dates: start: 20050214
  8. LOPERAMIDE HCL [Concomitant]
     Dates: start: 20050225

REACTIONS (6)
  - DEHYDRATION [None]
  - DIARRHOEA [None]
  - GENERAL PHYSICAL HEALTH DETERIORATION [None]
  - PYREXIA [None]
  - RENAL FAILURE ACUTE [None]
  - SEPTIC SHOCK [None]
